FAERS Safety Report 8186781-2 (Version None)
Quarter: 2012Q1

REPORT INFORMATION
  Report Type: 
  Country: None (occurrence: None)
  Receive Date: 20120306
  Receipt Date: 20120306
  Transmission Date: 20120608
  Serious: Yes (Other)
  Sender: FDA-Public Use
  Company Number: None

PATIENT
  Age: 80 Year
  Sex: Female
  Weight: 61.234 kg

DRUGS (1)
  1. ACT ANTICAVITY FLOURIDE RINSE [Suspect]
     Indication: DENTAL CARIES
     Dosage: MEASURED AMOUNT, CAP FULL
     Route: 048
     Dates: start: 20120301, end: 20120302

REACTIONS (2)
  - RASH GENERALISED [None]
  - PRODUCT LABEL ISSUE [None]
